FAERS Safety Report 21119291 (Version 6)
Quarter: 2022Q3

REPORT INFORMATION
  Report Type: Report from Study
  Country: US (occurrence: US)
  Receive Date: 20220722
  Receipt Date: 20220926
  Transmission Date: 20221026
  Serious: Yes (Hospitalization)
  Sender: FDA-Public Use
  Company Number: US-JNJFOC-20220702202

PATIENT
  Age: 66 Year
  Sex: Female
  Weight: 90 kg

DRUGS (5)
  1. SELEXIPAG [Suspect]
     Active Substance: SELEXIPAG
     Indication: Pulmonary arterial hypertension
     Dosage: UPTRAVI 200MCG ORALLY 2 TIMES DAILY
     Route: 048
  2. SELEXIPAG [Suspect]
     Active Substance: SELEXIPAG
     Indication: Pulmonary hypertension
     Route: 048
  3. SELEXIPAG [Suspect]
     Active Substance: SELEXIPAG
     Route: 048
  4. OPSUMIT [Concomitant]
     Active Substance: MACITENTAN
  5. SILDENAFIL [Concomitant]
     Active Substance: SILDENAFIL

REACTIONS (9)
  - Abdominal discomfort [Recovered/Resolved]
  - Hospitalisation [Unknown]
  - Condition aggravated [Unknown]
  - Decreased appetite [Not Recovered/Not Resolved]
  - Insomnia [Unknown]
  - Depression [Unknown]
  - Nausea [Not Recovered/Not Resolved]
  - Gout [Unknown]
  - Joint effusion [Unknown]

NARRATIVE: CASE EVENT DATE: 20220629
